FAERS Safety Report 21035175 (Version 1)
Quarter: 2022Q3

REPORT INFORMATION
  Report Type: Spontaneous
  Country: US (occurrence: None)
  Receive Date: 20220701
  Receipt Date: 20220701
  Transmission Date: 20221027
  Serious: No
  Sender: FDA-Public Use
  Company Number: None

PATIENT
  Age: 50 Year
  Sex: Male

DRUGS (3)
  1. PRASTERONE\TESTOSTERONE [Suspect]
     Active Substance: PRASTERONE\TESTOSTERONE
     Indication: Hormone replacement therapy
     Dosage: FREQUENCY : TWICE A WEEK;?
     Route: 058
     Dates: start: 20210916, end: 20220224
  2. Anastrozole 0.25mg tablets [Concomitant]
  3. Ipamorelin/sermorelin 8/12mg [Concomitant]

REACTIONS (4)
  - Recalled product administered [None]
  - Rash [None]
  - Blood pressure increased [None]
  - Ocular hyperaemia [None]

NARRATIVE: CASE EVENT DATE: 20220224
